FAERS Safety Report 9038891 (Version 1)
Quarter: 2013Q1

REPORT INFORMATION
  Report Type: Spontaneous
  Country: US (occurrence: None)
  Receive Date: 20130123
  Receipt Date: 20130123
  Transmission Date: 20140127
  Serious: Yes (Other)
  Sender: FDA-Public Use
  Company Number: None

PATIENT
  Age: 6 Year
  Sex: Male
  Weight: 28.58 kg

DRUGS (1)
  1. SINGULAIR [Suspect]
     Dosage: I TAB BY MOUTH EVERY DAY.
     Dates: start: 20120615, end: 201209

REACTIONS (4)
  - Abnormal dreams [None]
  - Somnambulism [None]
  - Hallucination [None]
  - Product substitution issue [None]
